FAERS Safety Report 15896706 (Version 1)
Quarter: 2019Q1

REPORT INFORMATION
  Report Type: Spontaneous
  Country: FR (occurrence: FR)
  Receive Date: 20190131
  Receipt Date: 20190131
  Transmission Date: 20190417
  Serious: Yes (Life-Threatening)
  Sender: FDA-Public Use
  Company Number: FR-TEVA-2019-FR-1005052

PATIENT
  Age: 71 Year
  Sex: Female
  Weight: 61 kg

DRUGS (11)
  1. OROZAMUDOL [Suspect]
     Active Substance: TRAMADOL
     Indication: PAIN
     Route: 048
     Dates: start: 20181009, end: 20181009
  2. NEFOPAM (CHLORHYDRATE DE) [Suspect]
     Active Substance: NEFOPAM HYDROCHLORIDE
     Indication: PAIN
     Route: 042
     Dates: start: 20181008, end: 20181010
  3. ETRAVIRINE [Concomitant]
     Active Substance: ETRAVIRINE
  4. LEVOTHYROX [Concomitant]
     Active Substance: LEVOTHYROXINE
  5. OROCAL VITAMINE D3 500 MG/200 U.I., COMPRIM? ? SUCER [Suspect]
     Active Substance: CALCIUM CARBONATE\CHOLECALCIFEROL
     Indication: EXTRA DOSE ADMINISTERED
     Route: 048
     Dates: end: 20181010
  6. COUMADINE [Suspect]
     Active Substance: WARFARIN SODIUM
     Indication: ATRIAL FIBRILLATION
     Route: 048
     Dates: start: 2016
  7. ALLOPURINOL. [Suspect]
     Active Substance: ALLOPURINOL
     Indication: PRODUCT USED FOR UNKNOWN INDICATION
     Route: 048
     Dates: start: 20181003, end: 20181009
  8. CALCIPARINE [Suspect]
     Active Substance: HEPARIN CALCIUM
     Indication: ATRIAL FIBRILLATION
     Route: 042
     Dates: start: 20180929, end: 20181010
  9. EUPRESSYL [Suspect]
     Active Substance: URAPIDIL
     Indication: HYPERTENSION
     Route: 048
     Dates: end: 20181010
  10. ISENTRESS [Concomitant]
     Active Substance: RALTEGRAVIR POTASSIUM
  11. SPECIAFOLDINE [Concomitant]
     Active Substance: FOLIC ACID

REACTIONS (3)
  - Extra dose administered [None]
  - Acute kidney injury [Recovering/Resolving]
  - Shock haemorrhagic [Recovered/Resolved]

NARRATIVE: CASE EVENT DATE: 20181010
